FAERS Safety Report 8143852-4 (Version None)
Quarter: 2012Q1

REPORT INFORMATION
  Report Type: 
  Country: None (occurrence: None)
  Receive Date: 20120217
  Receipt Date: 20120208
  Transmission Date: 20120608
  Serious: Yes (Other)
  Sender: FDA-Public Use
  Company Number: US-SANOFI-AVENTIS-2012SA008488

PATIENT
  Sex: Female

DRUGS (2)
  1. SOLOSTAR [Suspect]
  2. LANTUS [Suspect]
     Route: 058

REACTIONS (8)
  - RASH [None]
  - NEOPLASM [None]
  - VITAMIN D DECREASED [None]
  - BLOOD GLUCOSE INCREASED [None]
  - GLYCOSYLATED HAEMOGLOBIN INCREASED [None]
  - CARPAL TUNNEL SYNDROME [None]
  - HYPOKALAEMIA [None]
  - STRESS [None]
